FAERS Safety Report 6709677-9 (Version None)
Quarter: 2010Q2

REPORT INFORMATION
  Report Type: 
  Country: None (occurrence: None)
  Receive Date: 20100504
  Receipt Date: 20100427
  Transmission Date: 20101027
  Serious: Yes (Hospitalization)
  Sender: FDA-Public Use
  Company Number: DK-ROCHE-699761

PATIENT
  Sex: Female

DRUGS (3)
  1. ROACTEMRA [Suspect]
     Route: 042
     Dates: start: 20090109
  2. ROACTEMRA [Suspect]
     Route: 042
     Dates: end: 20100118
  3. METHOTREXATE [Concomitant]
     Route: 048
     Dates: start: 20060214, end: 20100118

REACTIONS (1)
  - ACUTE MYOCARDIAL INFARCTION [None]
